FAERS Safety Report 7322857-7 (Version None)
Quarter: 2011Q1

REPORT INFORMATION
  Report Type: 
  Country: None (occurrence: None)
  Receive Date: 20110215
  Receipt Date: 20110131
  Transmission Date: 20110831
  Serious: Yes (Life-Threatening, Hospitalization, Other)
  Sender: FDA-Public Use
  Company Number: 11-007

PATIENT
  Age: 76 Year
  Sex: Female
  Weight: 99.7913 kg

DRUGS (1)
  1. CEFUROXIME AXETIL TABLET 500 MG (NO PREF. NAME) [Suspect]
     Dosage: 1 TABLET; X1; PO
     Route: 048
     Dates: start: 20110128

REACTIONS (6)
  - ANAPHYLACTIC REACTION [None]
  - DIZZINESS [None]
  - LOSS OF CONSCIOUSNESS [None]
  - FALL [None]
  - FOOT FRACTURE [None]
  - DISORIENTATION [None]
